FAERS Safety Report 20114050 (Version 1)
Quarter: 2021Q4

REPORT INFORMATION
  Report Type: Spontaneous
  Country: JP (occurrence: JP)
  Receive Date: 20211125
  Receipt Date: 20211125
  Transmission Date: 20220304
  Serious: Yes (Hospitalization)
  Sender: FDA-Public Use
  Company Number: JP-ALLERGAN-2140011US

PATIENT
  Sex: Female

DRUGS (3)
  1. ASENAPINE MALEATE [Suspect]
     Active Substance: ASENAPINE MALEATE
     Indication: Schizophrenia
     Dosage: 15 MG, QD
     Route: 060
     Dates: end: 20211117
  2. ASENAPINE MALEATE [Suspect]
     Active Substance: ASENAPINE MALEATE
     Dosage: 20 MG, QD
     Route: 060
  3. ASENAPINE MALEATE [Suspect]
     Active Substance: ASENAPINE MALEATE
     Dosage: 15 MG, BID
     Route: 060
     Dates: start: 20211106

REACTIONS (3)
  - Sedation complication [Unknown]
  - Libido increased [Unknown]
  - Off label use [Unknown]
